FAERS Safety Report 6864688-8 (Version None)
Quarter: 2010Q3

REPORT INFORMATION
  Report Type: 
  Country: None (occurrence: None)
  Receive Date: 20100721
  Receipt Date: 20080609
  Transmission Date: 20110219
  Serious: No
  Sender: FDA-Public Use
  Company Number: US-PFIZER INC-2008030531

PATIENT
  Sex: Female
  Weight: 122.47 kg

DRUGS (7)
  1. CHANTIX [Suspect]
     Indication: SMOKING CESSATION THERAPY
     Route: 048
     Dates: start: 20071001
  2. VALTREX [Concomitant]
  3. PREVACID [Concomitant]
  4. ZOCOR [Concomitant]
  5. SPIRIVA [Concomitant]
  6. ALEVE (CAPLET) [Concomitant]
  7. EFFEXOR [Concomitant]

REACTIONS (1)
  - ARTHRITIS [None]
